FAERS Safety Report 9496282 (Version 1)
Quarter: 2013Q3

REPORT INFORMATION
  Report Type: Spontaneous
  Country: DE (occurrence: DE)
  Receive Date: 20130904
  Receipt Date: 20130904
  Transmission Date: 20140515
  Serious: Yes (Hospitalization)
  Sender: FDA-Public Use
  Company Number: DE-JNJFOC-20130900918

PATIENT
  Age: 50 Year
  Sex: Female
  Weight: 170 kg

DRUGS (4)
  1. XARELTO [Suspect]
     Indication: CEREBROVASCULAR ACCIDENT PROPHYLAXIS
     Route: 048
     Dates: end: 20130827
  2. XARELTO [Suspect]
     Indication: ATRIAL FIBRILLATION
     Route: 048
     Dates: end: 20130827
  3. TORASEMID [Concomitant]
     Route: 065
  4. METOPROLOL [Concomitant]
     Route: 065

REACTIONS (4)
  - Pharyngeal haematoma [Not Recovered/Not Resolved]
  - Dysphagia [Not Recovered/Not Resolved]
  - Oropharyngeal pain [Not Recovered/Not Resolved]
  - Oral pain [Not Recovered/Not Resolved]
